FAERS Safety Report 11194358 (Version 2)
Quarter: 2017Q1

REPORT INFORMATION
  Report Type: Spontaneous
  Country: US (occurrence: US)
  Receive Date: 20150616
  Receipt Date: 20170323
  Transmission Date: 20170428
  Serious: Yes (Other)
  Sender: FDA-Public Use
  Company Number: US-ELI_LILLY_AND_COMPANY-US201506004214

PATIENT
  Sex: Female

DRUGS (2)
  1. CYMBALTA [Suspect]
     Active Substance: DULOXETINE HYDROCHLORIDE
     Dosage: UNK UNK, UNKNOWN
     Route: 065
  2. CYMBALTA [Suspect]
     Active Substance: DULOXETINE HYDROCHLORIDE
     Indication: PRODUCT USED FOR UNKNOWN INDICATION
     Dosage: UNK, UNKNOWN
     Route: 065
     Dates: start: 20120218

REACTIONS (12)
  - Depression [Unknown]
  - Nightmare [Unknown]
  - Sleep disorder [Unknown]
  - Mood swings [Unknown]
  - Affect lability [Unknown]
  - Hyperhidrosis [Unknown]
  - Nausea [Unknown]
  - Drug withdrawal syndrome [Recovered/Resolved]
  - Balance disorder [Unknown]
  - Paraesthesia [Unknown]
  - Headache [Unknown]
  - Insomnia [Unknown]
